FAERS Safety Report 7008582-0 (Version None)
Quarter: 2010Q3

REPORT INFORMATION
  Report Type: 
  Country: None (occurrence: None)
  Receive Date: 20100922
  Receipt Date: 20100908
  Transmission Date: 20110219
  Serious: Yes (Life-Threatening, Hospitalization)
  Sender: FDA-Public Use
  Company Number: US-WATSON-2010-12561

PATIENT
  Age: 79 Year
  Sex: Female

DRUGS (3)
  1. SOTALOL (WATSON LABORATORIES) [Suspect]
     Indication: ATRIAL FIBRILLATION
     Dosage: 40 MG, BID
  2. SOTALOL (WATSON LABORATORIES) [Suspect]
     Indication: HYPERTENSION
  3. OSELTAMIVIR [Suspect]
     Indication: H1N1 INFLUENZA
     Dosage: 75 MG, BID

REACTIONS (2)
  - DRUG INTERACTION [None]
  - TORSADE DE POINTES [None]
